FAERS Safety Report 10779408 (Version 1)
Quarter: 2015Q1

REPORT INFORMATION
  Report Type: Spontaneous
  Country: US (occurrence: None)
  Receive Date: 20150206
  Receipt Date: 20150206
  Transmission Date: 20150721
  Serious: Yes (Life-Threatening, Hospitalization, Disabling, Other)
  Sender: FDA-Public Use
  Company Number: None

PATIENT
  Age: 66 Year
  Sex: Male
  Weight: 84.9 kg

DRUGS (1)
  1. WARFARIN [Suspect]
     Active Substance: WARFARIN
     Indication: ATRIAL FIBRILLATION

REACTIONS (5)
  - International normalised ratio increased [None]
  - Haemorrhage intracranial [None]
  - Decreased appetite [None]
  - Occult blood positive [None]
  - Drug interaction [None]

NARRATIVE: CASE EVENT DATE: 20140427
